FAERS Safety Report 11688399 (Version 10)
Quarter: 2017Q1

REPORT INFORMATION
  Report Type: Spontaneous
  Country: US (occurrence: US)
  Receive Date: 20151101
  Receipt Date: 20170221
  Transmission Date: 20170428
  Serious: Yes (Hospitalization, Congenital Anomaly, Other)
  Sender: FDA-Public Use
  Company Number: PHEH2015US022171

PATIENT
  Age: 1 Month
  Sex: Female

DRUGS (2)
  1. ONDANSETRON [Suspect]
     Active Substance: ONDANSETRON
     Indication: FOETAL EXPOSURE DURING PREGNANCY
     Dosage: MOTHERS DOSE: 8 MG, PRN
     Route: 064
  2. ZOFRAN [Suspect]
     Active Substance: ONDANSETRON HYDROCHLORIDE
     Indication: FOETAL EXPOSURE DURING PREGNANCY
     Dosage: MOTHER^S DOSE: AS NEEDED (PRN)
     Route: 064

REACTIONS (23)
  - Multiple congenital abnormalities [Unknown]
  - Heart disease congenital [Unknown]
  - Hemiplegia [Unknown]
  - Emotional distress [Unknown]
  - Pain [Unknown]
  - Pharyngitis [Unknown]
  - Anxiety [Unknown]
  - Congenital anomaly [Unknown]
  - Decreased appetite [Unknown]
  - Foetal exposure during pregnancy [Unknown]
  - Constipation [Unknown]
  - Bronchiolitis [Unknown]
  - Anhedonia [Unknown]
  - Coarctation of the aorta [Unknown]
  - Cyanosis [Unknown]
  - Left ventricular hypertrophy [Unknown]
  - Bronchitis [Unknown]
  - Premature baby [Unknown]
  - Progressive facial hemiatrophy [Unknown]
  - Urinary tract infection [Unknown]
  - Patent ductus arteriosus [Unknown]
  - Injury [Unknown]
  - Otitis media acute [Unknown]

NARRATIVE: CASE EVENT DATE: 20150113
